FAERS Safety Report 26184964 (Version 1)
Quarter: 2025Q4

REPORT INFORMATION
  Report Type: Spontaneous
  Country: US (occurrence: US)
  Receive Date: 20251222
  Receipt Date: 20251222
  Transmission Date: 20260118
  Serious: No
  Sender: ROCHE
  Company Number: US-ROCHE-10000464586

PATIENT
  Sex: Female

DRUGS (6)
  1. AVASTIN [Suspect]
     Active Substance: BEVACIZUMAB
     Indication: Neovascular age-related macular degeneration
  2. VABYSMO [Suspect]
     Active Substance: FARICIMAB-SVOA
     Indication: Product used for unknown indication
  3. VABYSMO [Suspect]
     Active Substance: FARICIMAB-SVOA
  4. VABYSMO [Suspect]
     Active Substance: FARICIMAB-SVOA
  5. VABYSMO [Suspect]
     Active Substance: FARICIMAB-SVOA
  6. PYRITHIONE ZINC [Concomitant]
     Active Substance: PYRITHIONE ZINC

REACTIONS (2)
  - Off label use [Unknown]
  - No adverse event [Unknown]
